FAERS Safety Report 10956448 (Version 3)
Quarter: 2015Q3

REPORT INFORMATION
  Report Type: Spontaneous
  Country: JP (occurrence: JP)
  Receive Date: 20150326
  Receipt Date: 20150722
  Transmission Date: 20151125
  Serious: Yes (Life-Threatening)
  Sender: FDA-Public Use
  Company Number: JP-SA-2015SA037033

PATIENT
  Age: 81 Year
  Sex: Female
  Weight: 50 kg

DRUGS (23)
  1. URSO [Concomitant]
     Active Substance: URSODIOL
     Route: 048
  2. BETAHISTINE [Concomitant]
     Active Substance: BETAHISTINE
     Route: 048
  3. HYALURONATE SODIUM [Concomitant]
     Active Substance: HYALURONATE SODIUM
     Dosage: OPHTHALMIC SOLUTION
     Route: 047
     Dates: end: 20150305
  4. ADONA [Concomitant]
     Active Substance: CARBAZOCHROME SODIUM SULFONATE
     Route: 041
     Dates: start: 20150307, end: 20150307
  5. LANSOPRAZOLE. [Concomitant]
     Active Substance: LANSOPRAZOLE
     Route: 048
  6. AMLODIPINE [Concomitant]
     Active Substance: AMLODIPINE BESYLATE
     Route: 048
  7. SILECE [Concomitant]
     Active Substance: FLUNITRAZEPAM
     Route: 048
  8. HEPAFLUSH [Concomitant]
     Dates: start: 20150307, end: 20150310
  9. GASTER [Concomitant]
     Active Substance: FAMOTIDINE
     Route: 041
  10. CLEXANE [Suspect]
     Active Substance: ENOXAPARIN SODIUM
     Indication: THROMBOSIS PROPHYLAXIS
     Route: 058
     Dates: start: 20150308, end: 20150308
  11. OLMETEC [Concomitant]
     Active Substance: OLMESARTAN MEDOXOMIL
     Route: 048
  12. FERROMIA [Concomitant]
     Active Substance: FERROUS CITRATE
     Route: 048
  13. EPINASTINE HYDROCHLORIDE. [Concomitant]
     Active Substance: EPINASTINE HYDROCHLORIDE
     Route: 048
  14. SENNOSIDE [Concomitant]
     Active Substance: SENNOSIDES
     Route: 048
  15. LOXOPROFEN [Concomitant]
     Active Substance: LOXOPROFEN
     Route: 048
  16. MALFA [Concomitant]
     Dosage: SUSPENSION
     Route: 048
  17. NASONEX [Concomitant]
     Active Substance: MOMETASONE FUROATE
     Dosage: 2 PUFFS QD?NASAL SPRAY
     Route: 045
     Dates: end: 20150308
  18. FEXOFENADINE HYDROCHLORIDE. [Concomitant]
     Active Substance: FEXOFENADINE HYDROCHLORIDE
     Route: 048
  19. AMLODIN [Concomitant]
     Active Substance: AMLODIPINE BESYLATE
  20. MOSAPRIDE CITRATE [Concomitant]
     Active Substance: MOSAPRIDE CITRATE
     Route: 048
  21. CEFAZOLIN [Concomitant]
     Active Substance: CEFAZOLIN
     Route: 041
     Dates: start: 20150306, end: 20150309
  22. CRESTOR [Concomitant]
     Active Substance: ROSUVASTATIN CALCIUM
     Route: 048
  23. ELECTROLYTES NOS [Concomitant]
     Active Substance: ELECTROLYTES NOS
     Route: 041
     Dates: start: 20150306, end: 20150307

REACTIONS (2)
  - Acute coronary syndrome [Recovered/Resolved]
  - Chest pain [Recovered/Resolved]

NARRATIVE: CASE EVENT DATE: 20150308
